FAERS Safety Report 7389746-3 (Version None)
Quarter: 2011Q1

REPORT INFORMATION
  Report Type: 
  Country: None (occurrence: None)
  Receive Date: 20110323
  Receipt Date: 20110315
  Transmission Date: 20110831
  Serious: Yes (Other)
  Sender: FDA-Public Use
  Company Number: 2008-185657-NL

PATIENT
  Age: 26 Year
  Sex: Female
  Weight: 123.8 kg

DRUGS (4)
  1. SYNTHROID [Concomitant]
  2. NUVARING [Suspect]
     Indication: CONTRACEPTION
     Dosage: 1 DF;QM;VAG
     Route: 067
     Dates: start: 20060501, end: 20061028
  3. NUVARING [Suspect]
     Indication: MENSTRUATION IRREGULAR
     Dosage: 1 DF;QM;VAG
     Route: 067
     Dates: start: 20060501, end: 20061028
  4. TUMS [Concomitant]

REACTIONS (13)
  - POSTPARTUM DEPRESSION [None]
  - NAUSEA [None]
  - MENSTRUATION IRREGULAR [None]
  - SEASONAL AFFECTIVE DISORDER [None]
  - OEDEMA PERIPHERAL [None]
  - SMALL INTESTINAL OBSTRUCTION [None]
  - VOMITING [None]
  - UTERINE LEIOMYOMA [None]
  - INTERNATIONAL NORMALISED RATIO DECREASED [None]
  - DEEP VEIN THROMBOSIS [None]
  - PYELONEPHRITIS [None]
  - ABDOMINAL PAIN LOWER [None]
  - DISCOMFORT [None]
